FAERS Safety Report 21937507 (Version 2)
Quarter: 2023Q1

REPORT INFORMATION
  Report Type: Report from Study
  Country: TR (occurrence: TR)
  Receive Date: 20230201
  Receipt Date: 20230328
  Transmission Date: 20230418
  Serious: Yes (Life-Threatening, Hospitalization)
  Sender: FDA-Public Use
  Company Number: TR-ELI_LILLY_AND_COMPANY-US202211010876

PATIENT
  Age: 70 Year
  Sex: Male
  Weight: 59 kg

DRUGS (5)
  1. PEMETREXED [Suspect]
     Active Substance: PEMETREXED
     Indication: Non-small cell lung cancer
     Dosage: 500 MG/M2, CYCLICAL, EVERY 21 DAYS
     Route: 042
     Dates: start: 20220825, end: 20220825
  2. PEMETREXED [Suspect]
     Active Substance: PEMETREXED
     Dosage: 375 MG/M2, CYCLICAL, EVERY 21 DAYS
     Route: 042
     Dates: start: 20220915
  3. CARBOPLATIN [Concomitant]
     Active Substance: CARBOPLATIN
     Indication: Non-small cell lung cancer
     Dosage: 5MG/ ML, EVERY 3 WEEKS
     Route: 042
     Dates: start: 20220825, end: 20220825
  4. CARBOPLATIN [Concomitant]
     Active Substance: CARBOPLATIN
     Dosage: 3.75MG/ ML, EVERY 3 WEEKS
     Route: 042
     Dates: start: 20220915, end: 20221027
  5. RETIFANLIMAB [Concomitant]
     Active Substance: RETIFANLIMAB
     Indication: Non-small cell lung cancer
     Dosage: 375 MG, CYCLICAL
     Route: 042
     Dates: start: 20220825

REACTIONS (3)
  - Platelet count decreased [Recovered/Resolved]
  - Platelet count decreased [Recovered/Resolved]
  - Febrile neutropenia [Recovered/Resolved]

NARRATIVE: CASE EVENT DATE: 20220901
